FAERS Safety Report 13688349 (Version 1)
Quarter: 2017Q2

REPORT INFORMATION
  Report Type: Spontaneous
  Country: US (occurrence: US)
  Receive Date: 20170626
  Receipt Date: 20170626
  Transmission Date: 20170830
  Serious: No
  Sender: FDA-Public Use
  Company Number: US-AUROBINDO-AUR-APU-2017-32758

PATIENT
  Age: 7 Year
  Sex: Female

DRUGS (1)
  1. CLINDAMYCIN PALMITATE HYDROCHLORIDE FOR ORAL SOLUTION USP(PEDIATRIC) [Suspect]
     Active Substance: CLINDAMYCIN PALMITATE HYDROCHLORIDE
     Indication: SINUSITIS
     Dosage: T100 ML, 3 TIMES A DAY
     Route: 048
     Dates: start: 20170410

REACTIONS (3)
  - Product colour issue [Unknown]
  - Malaise [Unknown]
  - Somnolence [Unknown]
